FAERS Safety Report 16675296 (Version 4)
Quarter: 2019Q4

REPORT INFORMATION
  Report Type: Spontaneous
  Country: JP (occurrence: JP)
  Receive Date: 20190806
  Receipt Date: 20191121
  Transmission Date: 20200122
  Serious: Yes (Hospitalization, Other)
  Sender: FDA-Public Use
  Company Number: JP-BAUSCH-BL-2019-013855

PATIENT
  Age: 65 Year
  Sex: Male
  Weight: 65 kg

DRUGS (5)
  1. DOVOBET [Concomitant]
     Active Substance: BETAMETHASONE\CALCIPOTRIENE
     Indication: PRODUCT USED FOR UNKNOWN INDICATION
     Dosage: CREAM
  2. COSENTYX [Concomitant]
     Active Substance: SECUKINUMAB
     Indication: PRODUCT USED FOR UNKNOWN INDICATION
     Dates: start: 20170906, end: 20181123
  3. TIGASON [Concomitant]
     Indication: PRODUCT USED FOR UNKNOWN INDICATION
     Dates: start: 20130906, end: 201703
  4. LUMICEF [Suspect]
     Active Substance: BRODALUMAB
     Indication: PSORIASIS
     Dosage: SYRINGE, DURATION: 2 MONTHS 26 DAYS
     Route: 058
     Dates: start: 20190104, end: 20190329
  5. MINOMYCIN [Concomitant]
     Active Substance: MINOCYCLINE HYDROCHLORIDE
     Indication: PRODUCT USED FOR UNKNOWN INDICATION
     Dates: start: 20190201, end: 20190203

REACTIONS (3)
  - Macular oedema [Recovering/Resolving]
  - Anterior chamber inflammation [Recovering/Resolving]
  - Uveitis [Recovering/Resolving]

NARRATIVE: CASE EVENT DATE: 201903
